FAERS Safety Report 8283588-2 (Version None)
Quarter: 2012Q2

REPORT INFORMATION
  Report Type: 
  Country: None (occurrence: None)
  Receive Date: 20120413
  Receipt Date: 20120405
  Transmission Date: 20120825
  Serious: Yes (Other)
  Sender: FDA-Public Use
  Company Number: US-BAYER-2011-120176

PATIENT
  Age: 28 Year
  Sex: Female
  Weight: 74.83 kg

DRUGS (7)
  1. PREVIDENT [Concomitant]
     Dosage: UNK
  2. YASMIN [Suspect]
     Indication: ACNE
     Dosage: UNK
     Dates: start: 20040101, end: 20060101
  3. YAZ [Suspect]
     Indication: CONTRACEPTION
     Dosage: UNK
     Dates: start: 20060101, end: 20060101
  4. HYDROCODONE BITARTRATE [Concomitant]
     Dosage: UNK
  5. YAZ [Suspect]
     Indication: ACNE
  6. HYDROCODONE BITARTRATE [Concomitant]
     Dosage: 10-500MG
     Route: 048
  7. YASMIN [Suspect]
     Indication: CONTRACEPTION

REACTIONS (18)
  - PAIN [None]
  - DRY EYE [None]
  - HYPERTENSION [None]
  - DIABETES MELLITUS [None]
  - NEOVASCULARISATION [None]
  - RETINAL VASCULITIS [None]
  - CATARACT [None]
  - OPTIC NEURITIS [None]
  - MACULAR FIBROSIS [None]
  - ANTINUCLEAR ANTIBODY POSITIVE [None]
  - RETINAL ARTERY OCCLUSION [None]
  - INJURY [None]
  - EMOTIONAL DISORDER [None]
  - GLAUCOMA [None]
  - ANXIETY [None]
  - RETINAL VEIN OCCLUSION [None]
  - DIABETIC RETINOPATHY [None]
  - MACULAR OEDEMA [None]
